FAERS Safety Report 17165280 (Version 1)
Quarter: 2019Q4

REPORT INFORMATION
  Report Type: Spontaneous
  Country: FR (occurrence: FR)
  Receive Date: 20191217
  Receipt Date: 20191217
  Transmission Date: 20200122
  Serious: Yes (Disabling, Other)
  Sender: FDA-Public Use
  Company Number: FR-MYLANLABS-2019M1123761

PATIENT
  Age: 72 Year
  Sex: Male

DRUGS (1)
  1. BUPIVACAINE. [Suspect]
     Active Substance: BUPIVACAINE
     Indication: ANALGESIC THERAPY
     Dosage: UNK
     Route: 037

REACTIONS (5)
  - Meniere^s disease [Recovered/Resolved]
  - Muscular weakness [Unknown]
  - Cyanosis [Unknown]
  - Autonomic nervous system imbalance [Unknown]
  - Condition aggravated [Unknown]
